FAERS Safety Report 4852400-3 (Version None)
Quarter: 2005Q4

REPORT INFORMATION
  Report Type: 
  Country: None (occurrence: None)
  Receive Date: 20051213
  Receipt Date: 20051206
  Transmission Date: 20060501
  Serious: Yes (Other)
  Sender: FDA-Public Use
  Company Number: US-JNJFOC-20051101082

PATIENT
  Sex: Male
  Weight: 88.91 kg

DRUGS (23)
  1. NATRECOR [Suspect]
     Dosage: 0.01 MCG/KG/MIN
     Route: 042
  2. NATRECOR [Suspect]
     Dosage: 0.01 MCG/KG/MIN
     Route: 042
  3. DEMODEX [Concomitant]
  4. DIURIL SODIUM [Concomitant]
  5. POTASSIUM [Concomitant]
  6. REGLAN [Concomitant]
  7. SPIRONOLACTONE [Concomitant]
  8. PRIMACOR [Concomitant]
  9. DOBUTAMINE [Concomitant]
  10. ZAROXOLYN [Concomitant]
  11. PROCRIT [Concomitant]
  12. MAGNESIUM [Concomitant]
  13. VITAMIN K [Concomitant]
  14. BUMEX [Concomitant]
  15. HEPARIN [Concomitant]
  16. NITROGLYCERIN [Concomitant]
     Dosage: 50 MG/250
  17. PHENYLEPHRINE [Concomitant]
  18. PROTONIX [Concomitant]
  19. LEVOTHYROXINE SODIUM [Concomitant]
  20. ASPIRIN [Concomitant]
  21. COREG [Concomitant]
  22. COUMADIN [Concomitant]
  23. DIGOXIN [Concomitant]

REACTIONS (3)
  - BLOOD BILIRUBIN INCREASED [None]
  - HEPATIC CONGESTION [None]
  - LIVER FUNCTION TEST ABNORMAL [None]
